FAERS Safety Report 7257140-1 (Version None)
Quarter: 2011Q1

REPORT INFORMATION
  Report Type: 
  Country: None (occurrence: None)
  Receive Date: 20110129
  Receipt Date: 20100802
  Transmission Date: 20110831
  Serious: No
  Sender: FDA-Public Use
  Company Number: US-ABBOTT-10P-163-0661150-00

PATIENT
  Age: 66 Year
  Sex: Female

DRUGS (9)
  1. PACQUIN [Concomitant]
     Indication: ARTHROPATHY
  2. SYNTHROID [Concomitant]
     Indication: HYPOTHYROIDISM
  3. HYDROCODONE [Concomitant]
     Indication: ARTHRALGIA
  4. ESTROGEN REPLACEMENT [Concomitant]
     Indication: PRODUCT USED FOR UNKNOWN INDICATION
  5. PRILOSEC [Concomitant]
     Indication: GASTROOESOPHAGEAL REFLUX DISEASE
  6. HUMIRA [Suspect]
     Indication: PSORIATIC ARTHROPATHY
     Dates: start: 20100716
  7. VOLTAREN [Concomitant]
     Indication: ARTHRITIS
  8. SINGULAIR [Concomitant]
     Indication: HYPERSENSITIVITY
  9. GABAPENTINE [Concomitant]
     Indication: NEURALGIA

REACTIONS (2)
  - FATIGUE [None]
  - HEADACHE [None]
